FAERS Safety Report 4417923-X (Version None)
Quarter: 2004Q2

REPORT INFORMATION
  Report Type: 
  Country: None (occurrence: None)
  Receive Date: 20040622
  Receipt Date: 20040420
  Transmission Date: 20050107
  Serious: Yes (Death)
  Sender: FDA-Public Use
  Company Number: 365107

PATIENT
  Age: 29 Year
  Sex: Female
  Weight: 90.2 kg

DRUGS (1)
  1. XELODA [Suspect]
     Dosage: ORAL
     Route: 048

REACTIONS (1)
  - CARCINOMA IN SITU OF EYE [None]
